FAERS Safety Report 9596724 (Version 1)
Quarter: 2013Q4

REPORT INFORMATION
  Report Type: Spontaneous
  Country: GB (occurrence: GB)
  Receive Date: 20131004
  Receipt Date: 20131004
  Transmission Date: 20140711
  Serious: Yes (Other)
  Sender: FDA-Public Use
  Company Number: GB-GLAXOSMITHKLINE-B0925882A

PATIENT
  Sex: Male

DRUGS (2)
  1. ATOVAQUONE + PROGUANIL HYDROCHLORIDE [Suspect]
     Indication: PRODUCT USED FOR UNKNOWN INDICATION
     Route: 048
     Dates: start: 20130820, end: 20130824
  2. ANTI-MALARIAL [Concomitant]

REACTIONS (2)
  - Haemolytic anaemia [Unknown]
  - Haemoglobin decreased [Unknown]
